FAERS Safety Report 22262804 (Version 2)
Quarter: 2023Q2

REPORT INFORMATION
  Report Type: Report from Study
  Country: CH (occurrence: CH)
  Receive Date: 20230428
  Receipt Date: 20230505
  Transmission Date: 20230721
  Serious: Yes (Hospitalization)
  Sender: FDA-Public Use
  Company Number: CH-ABBVIE-4744448

PATIENT
  Age: 75 Year
  Sex: Male

DRUGS (3)
  1. CARBIDOPA\LEVODOPA [Suspect]
     Active Substance: CARBIDOPA\LEVODOPA
     Indication: Parkinson^s disease
     Dosage: MD: 5.0 ML, CRD: 3.7 ML/H, ED: 2.0 ML?FREQUENCY TEXT: 16H THERAPY
     Route: 050
     Dates: start: 20230425
  2. CARBIDOPA\LEVODOPA [Suspect]
     Active Substance: CARBIDOPA\LEVODOPA
     Dosage: MD: 5.0 ML, CRD: 2.8 ML/H, ED: 2.0 ML?FREQUENCY TEXT: 16H THERAPY
     Route: 050
     Dates: start: 20230424, end: 20230425
  3. BENSERAZIDE HYDROCHLORIDE\LEVODOPA [Concomitant]
     Active Substance: BENSERAZIDE HYDROCHLORIDE\LEVODOPA
     Indication: Parkinson^s disease
     Route: 048
     Dates: start: 20230426

REACTIONS (6)
  - Craniocerebral injury [Not Recovered/Not Resolved]
  - Fall [Not Recovered/Not Resolved]
  - Intentional medical device removal by patient [Not Recovered/Not Resolved]
  - Akinesia [Not Recovered/Not Resolved]
  - Device dislocation [Recovered/Resolved]
  - Freezing phenomenon [Not Recovered/Not Resolved]

NARRATIVE: CASE EVENT DATE: 20230401
